FAERS Safety Report 4735395-2 (Version None)
Quarter: 2005Q3

REPORT INFORMATION
  Report Type: 
  Country: None (occurrence: None)
  Receive Date: 20050805
  Receipt Date: 20050727
  Transmission Date: 20060218
  Serious: Yes (Life-Threatening, Hospitalization)
  Sender: FDA-Public Use
  Company Number: DE-AMGEN-UK144415

PATIENT
  Sex: Female

DRUGS (3)
  1. MIMPARA [Suspect]
     Indication: HYPERPARATHYROIDISM SECONDARY
     Route: 048
     Dates: start: 20050202
  2. PANTOPRAZOLE SODIUM [Concomitant]
  3. CALCIUM ACETATE [Concomitant]

REACTIONS (1)
  - GASTRIC HAEMORRHAGE [None]
